FAERS Safety Report 20370328 (Version 1)
Quarter: 2022Q1

REPORT INFORMATION
  Report Type: Spontaneous
  Country: US (occurrence: None)
  Receive Date: 20220123
  Receipt Date: 20220123
  Transmission Date: 20220423
  Serious: Yes (Other)
  Sender: FDA-Public Use
  Company Number: None

PATIENT
  Age: 42 Year
  Sex: Female
  Weight: 51.75 kg

DRUGS (1)
  1. TERBINAFINE HYDROCHLORIDE [Suspect]
     Active Substance: TERBINAFINE HYDROCHLORIDE
     Indication: Tinea pedis
     Dosage: OTHER QUANTITY : 30 OUNCE(S);?FREQUENCY : TWICE A DAY;?
     Route: 061
     Dates: start: 20211231, end: 20220107

REACTIONS (1)
  - Rash [None]

NARRATIVE: CASE EVENT DATE: 20220107
